FAERS Safety Report 5762068-X (Version None)
Quarter: 2008Q2

REPORT INFORMATION
  Report Type: 
  Country: None (occurrence: None)
  Receive Date: 20080604
  Receipt Date: 20080526
  Transmission Date: 20081010
  Serious: Yes (Death, Life-Threatening, Hospitalization)
  Sender: FDA-Public Use
  Company Number: 2008AP001276

PATIENT
  Age: 31 Year
  Sex: Male

DRUGS (4)
  1. PREDNISONE TAB [Suspect]
     Indication: IMMUNOSUPPRESSION
     Dosage: 7.5 MG; QD; 22.5 MG; QD
  2. CYCLOSPORINE [Suspect]
     Indication: IMMUNOSUPPRESSION
     Dosage: 150 MG; BID
  3. MYCOPHENOLIC ACID [Suspect]
     Indication: IMMUNOSUPPRESSION
     Dosage: 720 MG; BID
  4. TELMISARTAN (TELMISARTAN) [Concomitant]

REACTIONS (25)
  - ASPERGILLOSIS [None]
  - BRAIN ABSCESS [None]
  - BRAIN STEM SYNDROME [None]
  - BRONCHOALVEOLAR LAVAGE ABNORMAL [None]
  - CANDIDIASIS [None]
  - CENTRAL NERVOUS SYSTEM LESION [None]
  - CEREBRAL INFARCTION [None]
  - CULTURE URINE POSITIVE [None]
  - CYTOMEGALOVIRUS COLITIS [None]
  - DELUSION [None]
  - FUNGUS BODY FLUID IDENTIFIED [None]
  - FUNGUS CSF TEST POSITIVE [None]
  - HALLUCINATION [None]
  - HYDROCEPHALUS [None]
  - KIDNEY TRANSPLANT REJECTION [None]
  - NEUROLOGICAL SYMPTOM [None]
  - OEDEMA PERIPHERAL [None]
  - OPPORTUNISTIC INFECTION [None]
  - PAIN IN EXTREMITY [None]
  - POST PROCEDURAL COMPLICATION [None]
  - PSEUDOMONAS INFECTION [None]
  - PULMONARY CAVITATION [None]
  - PURULENT DISCHARGE [None]
  - RESPIRATORY FAILURE [None]
  - SYSTEMIC MYCOSIS [None]
